FAERS Safety Report 9807681 (Version 4)
Quarter: 2014Q3

REPORT INFORMATION
  Report Type: Spontaneous
  Country: US (occurrence: US)
  Receive Date: 20140110
  Receipt Date: 20140701
  Transmission Date: 20150326
  Serious: Yes (Disabling)
  Sender: FDA-Public Use
  Company Number: US-009507513-1201USA01291

PATIENT
  Sex: Male

DRUGS (1)
  1. PROPECIA [Suspect]
     Active Substance: FINASTERIDE
     Indication: ALOPECIA
     Dosage: 1 MG, UNK
     Route: 048
     Dates: start: 20031023, end: 20070816

REACTIONS (15)
  - Prostatomegaly [Unknown]
  - Cognitive disorder [Not Recovered/Not Resolved]
  - Quality of life decreased [Not Recovered/Not Resolved]
  - Haematuria [Recovered/Resolved]
  - White blood cells urine [Unknown]
  - Back disorder [Not Recovered/Not Resolved]
  - Liver disorder [Unknown]
  - Inflammation [Unknown]
  - Renal cyst [Unknown]
  - Bladder trabeculation [Unknown]
  - Loss of libido [Unknown]
  - Erectile dysfunction [Not Recovered/Not Resolved]
  - Pain [Not Recovered/Not Resolved]
  - Dysuria [Recovered/Resolved]
  - Testicular pain [Not Recovered/Not Resolved]

NARRATIVE: CASE EVENT DATE: 200312
